FAERS Safety Report 9089555 (Version 1)
Quarter: 2013Q1

REPORT INFORMATION
  Report Type: Report from Study
  Country: US (occurrence: US)
  Receive Date: 20130201
  Receipt Date: 20130201
  Transmission Date: 20140127
  Serious: No
  Sender: FDA-Public Use
  Company Number: US-ABBOTT-13P-163-1037340-00

PATIENT
  Sex: Female

DRUGS (4)
  1. HUMIRA [Suspect]
     Indication: COLITIS ULCERATIVE
     Route: 058
     Dates: start: 201208, end: 201208
  2. HUMIRA [Suspect]
     Route: 058
     Dates: start: 201209, end: 201209
  3. HUMIRA [Suspect]
     Route: 058
     Dates: start: 201209, end: 201301
  4. HUMIRA [Suspect]
     Route: 058
     Dates: start: 201301

REACTIONS (2)
  - Inflammatory bowel disease [Not Recovered/Not Resolved]
  - Arthritis [Not Recovered/Not Resolved]
